FAERS Safety Report 8606461 (Version 2)
Quarter: 2017Q1

REPORT INFORMATION
  Report Type: Spontaneous
  Country: US (occurrence: US)
  Receive Date: 20120608
  Receipt Date: 20170227
  Transmission Date: 20170429
  Serious: No
  Sender: FDA-Public Use
  Company Number: US-ASTRAZENECA-2012SE16871

PATIENT
  Sex: Female
  Weight: 38.6 kg

DRUGS (6)
  1. PULMICORT RESPULES [Suspect]
     Active Substance: BUDESONIDE
     Indication: DYSPNOEA
     Dosage: 0.5 MG/2MG, TWO TIMES A DAY
     Route: 055
     Dates: start: 2009
  2. PULMICORT RESPULES [Suspect]
     Active Substance: BUDESONIDE
     Indication: LUNG DISORDER
     Dosage: 0.5 MG/2MG, TWO TIMES A DAY
     Route: 055
     Dates: start: 2009
  3. ALBUTEROL HFA [Concomitant]
     Active Substance: ALBUTEROL SULFATE
  4. PULMICORT RESPULES [Suspect]
     Active Substance: BUDESONIDE
     Indication: MULTIPLE ALLERGIES
     Dosage: 0.5 MG/2MG, TWO TIMES A DAY
     Route: 055
     Dates: start: 2009
  5. SIMVASTATIN. [Concomitant]
     Active Substance: SIMVASTATIN
  6. PULMICORT RESPULES [Suspect]
     Active Substance: BUDESONIDE
     Indication: EMPHYSEMA
     Dosage: 0.5 MG/2MG, TWO TIMES A DAY
     Route: 055
     Dates: start: 2009

REACTIONS (10)
  - Dry mouth [Unknown]
  - Blood cholesterol increased [Unknown]
  - Sinus disorder [Unknown]
  - Dyspnoea [Unknown]
  - Cataract [Unknown]
  - Body height decreased [Unknown]
  - Off label use [Unknown]
  - Cardiac valve disease [Unknown]
  - Product use issue [Unknown]
  - Weight decreased [Unknown]
